FAERS Safety Report 9790703 (Version 3)
Quarter: 2014Q3

REPORT INFORMATION
  Report Type: Report from Study
  Country: JP (occurrence: JP)
  Receive Date: 20131231
  Receipt Date: 20140912
  Transmission Date: 20150326
  Serious: Yes (Death, Life-Threatening)
  Sender: FDA-Public Use
  Company Number: JP-GLAXOSMITHKLINE-B0956202A

PATIENT
  Age: 78 Year
  Sex: Female
  Weight: 65 kg

DRUGS (35)
  1. NEO-MINOPHAGEN C [Concomitant]
     Active Substance: AMMONIUM GLYCYRRHIZATE
     Route: 042
     Dates: start: 20120919, end: 20130308
  2. ONCOVIN [Suspect]
     Active Substance: VINCRISTINE SULFATE
     Indication: ADVERSE EVENT
     Route: 042
     Dates: start: 20130515, end: 20130710
  3. ENDOXAN [Suspect]
     Active Substance: CYCLOPHOSPHAMIDE
     Indication: ADVERSE EVENT
     Route: 042
     Dates: start: 20130515, end: 20130710
  4. HYDROCORTONE [Suspect]
     Active Substance: HYDROCORTISONE
     Indication: ADVERSE EVENT
     Route: 042
     Dates: start: 20130513, end: 20130708
  5. URSO [Concomitant]
     Active Substance: URSODIOL
     Indication: HEPATIC CIRRHOSIS
     Route: 048
     Dates: end: 20120723
  6. OMEPRAL [Concomitant]
     Active Substance: OMEPRAZOLE
     Indication: ADVERSE EVENT
     Route: 042
     Dates: start: 20130325, end: 20130423
  7. GANATON [Concomitant]
     Active Substance: ITOPRIDE
     Indication: ADVERSE EVENT
     Dosage: 150MG PER DAY
     Route: 048
     Dates: start: 20130628, end: 20130719
  8. VESICARE [Concomitant]
     Active Substance: SOLIFENACIN SUCCINATE
     Indication: POLLAKIURIA
     Route: 048
     Dates: end: 20130719
  9. OMEPRAL [Concomitant]
     Active Substance: OMEPRAZOLE
     Indication: GASTRITIS
     Route: 048
     Dates: end: 20120723
  10. ROCEPHIN [Concomitant]
     Active Substance: CEFTRIAXONE SODIUM
     Indication: ADVERSE EVENT
     Route: 042
     Dates: start: 20130416, end: 20130720
  11. FUROSEMIDE. [Concomitant]
     Active Substance: FUROSEMIDE
     Indication: ADVERSE EVENT
     Route: 042
     Dates: start: 20130420, end: 20130713
  12. SEROTONE [Concomitant]
     Active Substance: AZASETRON HYDROCHLORIDE
     Indication: ADVERSE EVENT
     Route: 042
     Dates: start: 20130515, end: 20130710
  13. MEYLON [Concomitant]
     Active Substance: SODIUM BICARBONATE
     Indication: ADVERSE EVENT
     Route: 042
     Dates: start: 20130515, end: 20130712
  14. RITUXAN [Suspect]
     Active Substance: RITUXIMAB
     Indication: ADVERSE EVENT
     Route: 042
     Dates: start: 20130513, end: 20130708
  15. ALDACTONE [Concomitant]
     Active Substance: SPIRONOLACTONE
     Indication: HEPATIC CIRRHOSIS
     Route: 048
     Dates: start: 20111208, end: 20130719
  16. GASTER [Concomitant]
     Active Substance: FAMOTIDINE
     Indication: ADVERSE EVENT
     Dosage: 20MG PER DAY
     Route: 042
     Dates: start: 20130628, end: 20130628
  17. PRIMPERAN [Concomitant]
     Active Substance: METOCLOPRAMIDE HYDROCHLORIDE
     Indication: ADVERSE EVENT
     Route: 042
     Dates: start: 20130420, end: 20130712
  18. CALONAL [Concomitant]
     Active Substance: ACETAMINOPHEN
     Indication: ADVERSE EVENT
     Route: 048
     Dates: start: 20130513, end: 20130708
  19. REVOLADE [Suspect]
     Active Substance: ELTROMBOPAG
     Indication: IMMUNE THROMBOCYTOPENIC PURPURA
     Route: 048
     Dates: start: 20130308, end: 20130716
  20. REVOLADE [Suspect]
     Active Substance: ELTROMBOPAG
     Indication: IMMUNE THROMBOCYTOPENIC PURPURA
     Route: 048
     Dates: start: 20130717, end: 20130719
  21. PREDONINE [Suspect]
     Active Substance: PREDNISOLONE\PREDNISOLONE ACETATE\PREDNISOLONE SODIUM SUCCINATE
     Indication: ADVERSE EVENT
     Route: 042
     Dates: start: 20130515, end: 20130714
  22. MUCOSTA [Concomitant]
     Active Substance: REBAMIPIDE
     Indication: GASTRITIS
     Route: 048
     Dates: end: 20120723
  23. CHINESE MEDICINE [Concomitant]
     Active Substance: UNSPECIFIED INGREDIENT
     Indication: SPINAL COLUMN STENOSIS
     Route: 048
     Dates: start: 20111228, end: 20121017
  24. REVOLADE [Suspect]
     Active Substance: ELTROMBOPAG
     Indication: IMMUNE THROMBOCYTOPENIC PURPURA
     Route: 048
     Dates: start: 20110812, end: 20130307
  25. ADRIACIN [Suspect]
     Active Substance: DOXORUBICIN HYDROCHLORIDE
     Indication: ADVERSE EVENT
     Route: 042
     Dates: start: 20130515, end: 20130515
  26. FUROSEMIDE. [Concomitant]
     Active Substance: FUROSEMIDE
     Indication: HEPATIC CIRRHOSIS
     Route: 048
     Dates: end: 20130719
  27. OPALMON [Concomitant]
     Active Substance: LIMAPROST
     Indication: SPINAL COLUMN STENOSIS
     Route: 048
     Dates: start: 20111219, end: 20130719
  28. ALBUMIN [Concomitant]
     Active Substance: ALBUMIN (HUMAN)
     Indication: ADVERSE EVENT
     Dosage: 100ML PER DAY
     Route: 042
     Dates: start: 20130711, end: 20130713
  29. BONOTEO [Concomitant]
     Active Substance: MINODRONIC ACID
     Indication: OSTEOPOROSIS
     Route: 048
     Dates: end: 20130719
  30. UNASYN [Concomitant]
     Active Substance: AMPICILLIN SODIUM\SULBACTAM SODIUM
     Indication: ADVERSE EVENT
     Route: 042
     Dates: start: 20130424, end: 20130610
  31. AMINOLEBAN [Concomitant]
     Active Substance: AMINO ACIDS
     Route: 042
     Dates: start: 20130718, end: 20130718
  32. MUCOSTA [Concomitant]
     Active Substance: REBAMIPIDE
     Indication: GASTRITIS
     Route: 048
     Dates: end: 20130507
  33. FESIN [Concomitant]
     Active Substance: IRON SUCROSE
     Indication: ADVERSE EVENT
     Dosage: 40MG PER DAY
     Route: 042
     Dates: start: 20130331, end: 20130402
  34. NEXIUM [Concomitant]
     Active Substance: ESOMEPRAZOLE MAGNESIUM
     Indication: ADVERSE EVENT
     Dosage: 20MG PER DAY
     Route: 048
     Dates: start: 20130401, end: 20130719
  35. CELESTAMINE [Concomitant]
     Active Substance: BETAMETHASONE\DEXCHLORPHENIRAMINE MALEATE
     Indication: ADVERSE EVENT
     Route: 048
     Dates: start: 20130513, end: 20130708

REACTIONS (8)
  - Hypokalaemia [Recovering/Resolving]
  - Pancytopenia [Recovering/Resolving]
  - Tinea pedis [Recovered/Resolved]
  - Respiratory failure [Fatal]
  - Hepatic failure [Fatal]
  - Pneumonia [Fatal]
  - Hypothyroidism [Recovering/Resolving]
  - Lymphoma [Recovering/Resolving]

NARRATIVE: CASE EVENT DATE: 20110823
